FAERS Safety Report 15472523 (Version 2)
Quarter: 2018Q4

REPORT INFORMATION
  Report Type: Spontaneous
  Country: US (occurrence: US)
  Receive Date: 20181008
  Receipt Date: 20181019
  Transmission Date: 20190205
  Serious: No
  Sender: FDA-Public Use
  Company Number: US-BIOGEN-2018BI00640735

PATIENT
  Sex: Male

DRUGS (1)
  1. TECFIDERA [Suspect]
     Active Substance: DIMETHYL FUMARATE
     Indication: MULTIPLE SCLEROSIS
     Route: 065
     Dates: start: 20130423, end: 20180401

REACTIONS (6)
  - Flushing [Unknown]
  - Gastrointestinal disorder [Unknown]
  - Bradyphrenia [Unknown]
  - Cardiac disorder [Unknown]
  - Malaise [Unknown]
  - Tooth fracture [Unknown]
